FAERS Safety Report 6000062-4 (Version None)
Quarter: 2008Q4

REPORT INFORMATION
  Report Type: 
  Country: None (occurrence: None)
  Receive Date: 20081215
  Receipt Date: 20081212
  Transmission Date: 20090506
  Serious: Yes (Life-Threatening, Hospitalization)
  Sender: FDA-Public Use
  Company Number: B0545691A

PATIENT
  Age: 85 Year
  Sex: Male

DRUGS (2)
  1. ARIXTRA [Suspect]
     Indication: EMBOLISM VENOUS
     Dosage: 1.5MG PER DAY
     Route: 058
     Dates: start: 20080919, end: 20080927
  2. ARICEPT [Concomitant]
     Route: 048

REACTIONS (3)
  - ANAEMIA POSTOPERATIVE [None]
  - DISEASE PROGRESSION [None]
  - HAEMATOMA [None]
